FAERS Safety Report 5758669-5 (Version None)
Quarter: 2008Q2

REPORT INFORMATION
  Report Type: 
  Country: None (occurrence: None)
  Receive Date: 20080603
  Receipt Date: 20080603
  Transmission Date: 20081010
  Serious: Yes (Hospitalization)
  Sender: FDA-Public Use
  Company Number: None

PATIENT
  Sex: Male
  Weight: 85.5 kg

DRUGS (4)
  1. ELOXATIN [Suspect]
     Dosage: 29 MG
     Dates: end: 20080428
  2. ATIVAN [Concomitant]
  3. PROCHLORPERAZINE MALEATE [Concomitant]
  4. ZOFAN [Concomitant]

REACTIONS (8)
  - BLOOD PRESSURE DIASTOLIC DECREASED [None]
  - BURNING SENSATION [None]
  - ERYTHEMA [None]
  - FLUSHING [None]
  - HEART RATE INCREASED [None]
  - HYPERHIDROSIS [None]
  - PARAESTHESIA [None]
  - SWOLLEN TONGUE [None]
